FAERS Safety Report 7491088-2 (Version None)
Quarter: 2011Q2

REPORT INFORMATION
  Report Type: 
  Country: None (occurrence: None)
  Receive Date: 20110519
  Receipt Date: 20110512
  Transmission Date: 20111010
  Serious: Yes (Other)
  Sender: FDA-Public Use
  Company Number: US-ROCHE-775725

PATIENT
  Sex: Female
  Weight: 69.9 kg

DRUGS (9)
  1. LASIX [Concomitant]
  2. LISINOPRIL [Concomitant]
  3. ZETIA [Concomitant]
  4. SIMVASTATIN [Concomitant]
  5. OMEPRAZOLE [Concomitant]
  6. PROMETHAZINE HCL [Concomitant]
     Dosage: 1/2 AS NEEDED
  7. METFFORMIN HYDROCHLORIDE [Concomitant]
     Dosage: DOSE: 850
  8. BONIVA [Suspect]
     Dosage: DOSE: 03 MG/ML; INTRAVENOUS PUSH
     Route: 042
     Dates: start: 20101026
  9. BONIVA [Suspect]
     Indication: OSTEOPOROSIS
     Route: 042
     Dates: start: 20090727, end: 20091029

REACTIONS (5)
  - INJECTION SITE INFLAMMATION [None]
  - INJECTION SITE EXTRAVASATION [None]
  - INJECTION SITE OEDEMA [None]
  - THROMBOPHLEBITIS SUPERFICIAL [None]
  - INJECTION SITE NODULE [None]
